FAERS Safety Report 18310454 (Version 1)
Quarter: 2020Q3

REPORT INFORMATION
  Report Type: Spontaneous
  Country: US (occurrence: US)
  Receive Date: 20200924
  Receipt Date: 20200924
  Transmission Date: 20201103
  Serious: No
  Sender: FDA-Public Use
  Company Number: US-ENDO PHARMACEUTICALS INC-2019-107553

PATIENT
  Age: 60 Year
  Sex: Female

DRUGS (5)
  1. PROPRANOLOL [Concomitant]
     Active Substance: PROPRANOLOL HYDROCHLORIDE
     Indication: PRODUCT USED FOR UNKNOWN INDICATION
  2. CLONAZEPAM. [Suspect]
     Active Substance: CLONAZEPAM
     Dosage: 0.25 MG TWO DAYS OF THE WEEK AND CONTINUES ON FOUR WEEKSUNK
     Route: 065
     Dates: start: 201908
  3. CLONAZEPAM. [Suspect]
     Active Substance: CLONAZEPAM
     Indication: ANXIETY
     Dosage: 0.25 MG TWICE DAILY FOR 4 DAYS AND 0.75 MG TOTAL FOR THREE DAYS
     Route: 065
     Dates: start: 201908
  4. CLONAZEPAM. [Suspect]
     Active Substance: CLONAZEPAM
     Dosage: 0.5 MG EVERY MORNING AND 0.25 MG EVERY EVENING FOR 5 DAYS OF THE WEEK
     Route: 065
     Dates: start: 201908
  5. CLONAZEPAM. [Suspect]
     Active Substance: CLONAZEPAM
     Dosage: UNK UNKNOWN, UNKNOWN, TAKEN BEFORE LAST WEEK
     Route: 065

REACTIONS (2)
  - Paraesthesia [Not Recovered/Not Resolved]
  - Off label use [Not Recovered/Not Resolved]

NARRATIVE: CASE EVENT DATE: 201907
